FAERS Safety Report 14619498 (Version 3)
Quarter: 2018Q1

REPORT INFORMATION
  Report Type: Spontaneous
  Country: SG (occurrence: SG)
  Receive Date: 20180309
  Receipt Date: 20180316
  Transmission Date: 20180509
  Serious: Yes (Death, Other)
  Sender: FDA-Public Use
  Company Number: SG-SEATTLE GENETICS-2018SGN00485

PATIENT
  Sex: Male

DRUGS (5)
  1. ADCETRIS [Suspect]
     Active Substance: BRENTUXIMAB VEDOTIN
     Indication: LYMPHOMA
     Dosage: UNK
     Route: 065
     Dates: start: 20180112
  2. COTRIMOXAZOLE [Concomitant]
     Active Substance: SULFAMETHOXAZOLE\TRIMETHOPRIM
  3. PREDNISOLONE. [Concomitant]
     Active Substance: PREDNISOLONE
     Indication: LYMPHOMA
  4. ENOXAPARIN SODIUM. [Concomitant]
     Active Substance: ENOXAPARIN SODIUM
     Indication: DEEP VEIN THROMBOSIS
  5. ACICLOVIR [Concomitant]
     Active Substance: ACYCLOVIR

REACTIONS (4)
  - Shock [Fatal]
  - Multiple organ dysfunction syndrome [Fatal]
  - Pyrexia [Unknown]
  - Respiratory failure [Fatal]

NARRATIVE: CASE EVENT DATE: 20180112
